FAERS Safety Report 16392908 (Version 1)
Quarter: 2019Q2

REPORT INFORMATION
  Report Type: Spontaneous
  Country: TN (occurrence: TN)
  Receive Date: 20190605
  Receipt Date: 20190605
  Transmission Date: 20190711
  Serious: Yes (Other)
  Sender: FDA-Public Use
  Company Number: TN-GLAXOSMITHKLINE-TN2019GSK097851

PATIENT
  Age: 27 Year
  Sex: Female

DRUGS (4)
  1. CYCLOSPORINE. [Suspect]
     Active Substance: CYCLOSPORINE
     Indication: PUSTULAR PSORIASIS
     Dosage: 100 MG, UNK PER DAY
  2. ACITRETIN. [Suspect]
     Active Substance: ACITRETIN
     Dosage: 50 MG, UNK, PER DAY
  3. ACITRETIN. [Suspect]
     Active Substance: ACITRETIN
     Indication: PUSTULAR PSORIASIS
     Dosage: UNK
  4. BETAMETHASONE. [Suspect]
     Active Substance: BETAMETHASONE
     Indication: PUSTULAR PSORIASIS
     Dosage: UNK
     Route: 061

REACTIONS (5)
  - Alopecia [Recovered/Resolved]
  - Diffuse alopecia [Recovered/Resolved]
  - Exposure during pregnancy [Unknown]
  - Post procedural sepsis [Unknown]
  - Live birth [Unknown]
